FAERS Safety Report 8985000 (Version 1)
Quarter: 2012Q4

REPORT INFORMATION
  Report Type: 
  Country: US (occurrence: US)
  Receive Date: 20121226
  Receipt Date: 20121226
  Transmission Date: 20130627
  Serious: No
  Sender: FDA-Public Use
  Company Number: US-PFIZER INC-2012325888

PATIENT
  Sex: Male
  Weight: 145 kg

DRUGS (7)
  1. LYRICA [Suspect]
     Indication: DIABETIC NEPHROPATHY
     Dosage: 75 mg, 2x/day
     Route: 048
     Dates: start: 2010
  2. LYRICA [Suspect]
     Dosage: 150 mg (2 x 75 mg), 2x/day
     Route: 048
  3. LYRICA [Suspect]
     Dosage: UNK
     Route: 048
  4. DIAZEPAM [Suspect]
     Indication: ANXIETY
     Dosage: 2 mg, 3x/day
     Dates: start: 201207
  5. LASIX [Concomitant]
     Indication: DIURETIC THERAPY
     Dosage: 40 mg, daily
  6. PLAVIX [Concomitant]
     Indication: CARDIAC OPERATION
     Dosage: 75 mg, daily
  7. OMEPRAZOLE [Concomitant]
     Indication: PHARYNGEAL DISORDER
     Dosage: UNK

REACTIONS (4)
  - Vision blurred [Recovered/Resolved]
  - Erectile dysfunction [Unknown]
  - Weight increased [Not Recovered/Not Resolved]
  - Hypersomnia [Unknown]
